FAERS Safety Report 8920406 (Version 2)
Quarter: 2012Q4

REPORT INFORMATION
  Report Type: 
  Country: NL (occurrence: NL)
  Receive Date: 20121122
  Receipt Date: 20121223
  Transmission Date: 20130627
  Serious: Yes (Other)
  Sender: FDA-Public Use
  Company Number: PHHY2012NL105749

PATIENT
  Sex: Male

DRUGS (5)
  1. ZOMETA [Suspect]
     Indication: PROSTATE CANCER METASTATIC
     Dosage: 4 mg/100ml once every 21 days
     Dates: start: 20120115
  2. ZOMETA [Suspect]
     Dosage: 4 mg/100ml once every 21 days
     Dates: start: 20120514
  3. ZOMETA [Suspect]
     Dosage: 4 mg/100ml once every 21 days
     Dates: start: 20120605, end: 20120621
  4. DICLOFENAC [Concomitant]
     Dosage: 50 UKN, UNK
     Dates: start: 20120101
  5. OMEPRAZOLE [Concomitant]
     Dosage: 20 UKN, UNK
     Dates: start: 20120101

REACTIONS (4)
  - Osteonecrosis of jaw [Unknown]
  - Swelling [Unknown]
  - Erythema [Unknown]
  - Terminal state [Unknown]
